FAERS Safety Report 4479481-3 (Version None)
Quarter: 2004Q4

REPORT INFORMATION
  Report Type: 
  Country: None (occurrence: None)
  Receive Date: 20041018
  Receipt Date: 20040921
  Transmission Date: 20050328
  Serious: Yes (Hospitalization)
  Sender: FDA-Public Use
  Company Number: JP_040904627

PATIENT
  Age: 69 Year
  Sex: Male
  Weight: 58 kg

DRUGS (4)
  1. VANCOMYCIN [Suspect]
     Indication: PNEUMONIA STAPHYLOCOCCAL
     Dosage: 1500 MG/1 DAY
  2. FLOMOXEF SODIUM [Concomitant]
  3. HALCION [Concomitant]
  4. ORUDIS [Concomitant]

REACTIONS (1)
  - LIVER DISORDER [None]
